FAERS Safety Report 10462685 (Version 1)
Quarter: 2014Q3

REPORT INFORMATION
  Report Type: Spontaneous
  Country: US (occurrence: US)
  Receive Date: 20140918
  Receipt Date: 20140918
  Transmission Date: 20150326
  Serious: Yes (Other)
  Sender: FDA-Public Use
  Company Number: US-PFIZER INC-2014256661

PATIENT
  Age: 77 Year
  Sex: Female
  Weight: 48.07 kg

DRUGS (2)
  1. TYLENOL WITH CODEINE [Suspect]
     Active Substance: ACETAMINOPHEN\CODEINE PHOSPHATE
     Indication: POST HERPETIC NEURALGIA
     Dosage: UNK
     Dates: start: 2014
  2. LYRICA [Suspect]
     Active Substance: PREGABALIN
     Indication: POST HERPETIC NEURALGIA
     Dosage: 75 MG, 2X/DAY
     Route: 048
     Dates: start: 2012

REACTIONS (4)
  - Disease progression [Unknown]
  - Balance disorder [Unknown]
  - Gait disturbance [Unknown]
  - Walking aid user [Unknown]

NARRATIVE: CASE EVENT DATE: 2014
